FAERS Safety Report 7752938-5 (Version None)
Quarter: 2011Q3

REPORT INFORMATION
  Report Type: 
  Country: None (occurrence: None)
  Receive Date: 20110915
  Receipt Date: 20110906
  Transmission Date: 20111222
  Serious: Yes (Hospitalization)
  Sender: FDA-Public Use
  Company Number: GB-JNJFOC-20110902527

PATIENT
  Age: 33 Year
  Sex: Female

DRUGS (3)
  1. ALBUTEROL [Concomitant]
     Indication: ASTHMA
     Dosage: AS NECESSARY
     Route: 055
  2. NICORETTE [Suspect]
     Indication: SMOKING CESSATION THERAPY
     Route: 061
     Dates: start: 20110819, end: 20110822
  3. NICORETTE [Suspect]
     Route: 061

REACTIONS (1)
  - EPILEPSY [None]
